FAERS Safety Report 24966106 (Version 1)
Quarter: 2025Q1

REPORT INFORMATION
  Report Type: Spontaneous
  Country: US (occurrence: US)
  Receive Date: 20250213
  Receipt Date: 20250213
  Transmission Date: 20250408
  Serious: Yes (Other)
  Sender: RECKITT BENCKISER
  Company Number: US-Indivior Limited-INDV-159000-2025

PATIENT

DRUGS (3)
  1. BUPRENORPHINE [Suspect]
     Active Substance: BUPRENORPHINE
     Indication: Drug dependence
     Route: 065
  2. SUBLOCADE [Suspect]
     Active Substance: BUPRENORPHINE
     Indication: Drug dependence
     Dosage: 300 MILLIGRAM, QMO
     Route: 065
  3. SUBLOCADE [Suspect]
     Active Substance: BUPRENORPHINE

REACTIONS (2)
  - Large intestine perforation [Unknown]
  - Product administered at inappropriate site [Recovered/Resolved]
